FAERS Safety Report 7462986-0 (Version None)
Quarter: 2011Q2

REPORT INFORMATION
  Report Type: 
  Country: None (occurrence: None)
  Receive Date: 20110506
  Receipt Date: 20110427
  Transmission Date: 20111010
  Serious: Yes (Other)
  Sender: FDA-Public Use
  Company Number: CA-JNJFOC-20110500206

PATIENT
  Sex: Male
  Weight: 78 kg

DRUGS (3)
  1. REMICADE [Suspect]
     Indication: CROHN'S DISEASE
     Route: 042
  2. REMICADE [Suspect]
     Dosage: 10 MG/KG
     Route: 042
  3. REMICADE [Suspect]
     Route: 042

REACTIONS (7)
  - FAECAL INCONTINENCE [None]
  - PROCTALGIA [None]
  - DIARRHOEA [None]
  - STOMATITIS [None]
  - HAEMATOCHEZIA [None]
  - PROCTITIS [None]
  - ACNE [None]
